FAERS Safety Report 7709331-0 (Version None)
Quarter: 2011Q3

REPORT INFORMATION
  Report Type: 
  Country: None (occurrence: None)
  Receive Date: 20110819
  Receipt Date: 20110808
  Transmission Date: 20111222
  Serious: Yes (Other)
  Sender: FDA-Public Use
  Company Number: 2011AP001716

PATIENT
  Age: 53 Year
  Sex: Female

DRUGS (5)
  1. ACETAMINOPHEN [Concomitant]
  2. LANSOPRAZOLE [Concomitant]
  3. TOLTERODINE TARTRATE [Concomitant]
  4. TOPIRAMATE [Suspect]
     Indication: PRODUCT USED FOR UNKNOWN INDICATION
     Dosage: 25 MG;BID; OPO
     Route: 048
     Dates: start: 20100618
  5. PAROXETINE HCL [Concomitant]

REACTIONS (1)
  - TONGUE DISCOLOURATION [None]
